FAERS Safety Report 7880603-2 (Version None)
Quarter: 2011Q4

REPORT INFORMATION
  Report Type: 
  Country: None (occurrence: None)
  Receive Date: 20111101
  Receipt Date: 20111027
  Transmission Date: 20120403
  Serious: Yes (Other)
  Sender: FDA-Public Use
  Company Number: US-BAYER-2011-105028

PATIENT
  Sex: Female

DRUGS (1)
  1. MIRENA [Suspect]
     Dosage: DAILY DOSE 20 ?G
     Route: 015

REACTIONS (6)
  - BREAST TENDERNESS [None]
  - MENSTRUATION IRREGULAR [None]
  - ABDOMINAL DISTENSION [None]
  - FEELING ABNORMAL [None]
  - VAGINAL HAEMORRHAGE [None]
  - NAUSEA [None]
